FAERS Safety Report 4883167-0 (Version None)
Quarter: 2006Q1

REPORT INFORMATION
  Report Type: 
  Country: None (occurrence: None)
  Receive Date: 20060117
  Receipt Date: 20060117
  Transmission Date: 20060701
  Serious: Yes (Hospitalization)
  Sender: FDA-Public Use
  Company Number: None

PATIENT
  Age: 57 Year
  Sex: Female
  Weight: 95.5 kg

DRUGS (13)
  1. AMIODARONE [Suspect]
     Indication: ATRIAL FIBRILLATION
     Dosage: 150MG   ONCE     IV BOLUS
     Route: 040
     Dates: start: 20050913, end: 20050913
  2. AMIODARONE [Suspect]
     Indication: ATRIAL FIBRILLATION
     Dosage: 7MG/MIN X 12 H THEN 0.5MG/MIN   GTT   IV DRIP
     Route: 041
     Dates: start: 20050913, end: 20050914
  3. PRAVASTATIN [Concomitant]
  4. SPIRONOLACTONE [Concomitant]
  5. WARFARIN [Concomitant]
  6. METOPROLOL [Concomitant]
  7. LASIX [Concomitant]
  8. ZOLOFT [Concomitant]
  9. HYDRALAZINE [Concomitant]
  10. CAPTOPRIL [Concomitant]
  11. PREVACID [Concomitant]
  12. DIGOXIN [Concomitant]
  13. AMBIEN [Concomitant]

REACTIONS (3)
  - ELECTROCARDIOGRAM QT PROLONGED [None]
  - TORSADE DE POINTES [None]
  - VENTRICULAR TACHYCARDIA [None]
